FAERS Safety Report 23758181 (Version 1)
Quarter: 2024Q2

REPORT INFORMATION
  Report Type: Spontaneous
  Country: RO (occurrence: None)
  Receive Date: 20240418
  Receipt Date: 20240418
  Transmission Date: 20240715
  Serious: Yes (Other)
  Sender: FDA-Public Use
  Company Number: 2024A092976

PATIENT
  Age: 20 Year
  Sex: Female

DRUGS (23)
  1. QUETIAPINE [Suspect]
     Active Substance: QUETIAPINE
     Indication: Suicide attempt
     Route: 048
  2. CLONAZEPAM [Suspect]
     Active Substance: CLONAZEPAM
     Indication: Psychotic symptom
     Dosage: 2MG (1/2 TABLET/DAY)
     Route: 048
  3. CLONAZEPAM [Suspect]
     Active Substance: CLONAZEPAM
     Indication: Suicide attempt
     Dosage: 2MG (1/2 TABLET/DAY)
     Route: 048
  4. CLONAZEPAM [Suspect]
     Active Substance: CLONAZEPAM
     Indication: Psychotic symptom
     Dosage: 1 DOSAGE FORM IN 1 DAY, 1 DOSAGE FORM
     Route: 048
  5. CLONAZEPAM [Suspect]
     Active Substance: CLONAZEPAM
     Indication: Suicide attempt
     Dosage: 1 DOSAGE FORM IN 1 DAY, 1 DOSAGE FORM
     Route: 048
  6. OLANZAPINE [Suspect]
     Active Substance: OLANZAPINE
     Indication: Psychotic symptom
     Dosage: 5 MG IN DAY
  7. OLANZAPINE [Suspect]
     Active Substance: OLANZAPINE
     Indication: Psychotic symptom
     Dosage: 15 MG IN DAY
  8. OLANZAPINE [Suspect]
     Active Substance: OLANZAPINE
     Indication: Psychotic symptom
     Dosage: 1 TABLET/DAY FOR A WEEK
  9. DIAZEPAM [Suspect]
     Active Substance: DIAZEPAM
  10. RISPERIDONE [Suspect]
     Active Substance: RISPERIDONE
     Dosage: 2 MILLILITRE IN 1 DAY
     Route: 048
  11. RISPERIDONE [Suspect]
     Active Substance: RISPERIDONE
     Dosage: 6 MILLILITRE IN 1 DAY
     Route: 048
  12. VALPROIC ACID [Suspect]
     Active Substance: VALPROIC ACID
     Dosage: 3 DOSAGE FORM IN DAY
  13. VALPROIC ACID [Suspect]
     Active Substance: VALPROIC ACID
     Dosage: 5 MILLILITER FORM IN DAY
  14. VALPROIC ACID [Suspect]
     Active Substance: VALPROIC ACID
     Dosage: 3 DOSAGE FORM IN DAY
  15. TRIHEXYPHENIDYL [Suspect]
     Active Substance: TRIHEXYPHENIDYL
     Dosage: 1 DOSAGE FORM IN DAY
  16. TRAZODONE [Suspect]
     Active Substance: TRAZODONE HYDROCHLORIDE
     Dosage: 1 DOSAGE FORM IN 1 DAY
  17. CLOZAPINE [Concomitant]
     Active Substance: CLOZAPINE
     Dosage: 1 DOSAGE FORM IN 1 DAY
  18. VORTIOXETINE [Concomitant]
     Active Substance: VORTIOXETINE
     Dosage: 1 DOSAGE FORM IN 1 DAY
  19. VORTIOXETINE [Concomitant]
     Active Substance: VORTIOXETINE
     Dosage: 2 DOSAGE FORM IN 1 DAY
  20. CLOMIPRAMINE [Concomitant]
     Active Substance: CLOMIPRAMINE
     Indication: Depression
     Dosage: 1 DOSAGE FORM IN 1 DAY
  21. CLOMIPRAMINE [Concomitant]
     Active Substance: CLOMIPRAMINE
     Indication: Depression
     Dosage: 3 DOSAGE FORM IN 1 DAY
  22. CARIPRAZINE [Concomitant]
     Active Substance: CARIPRAZINE
     Dosage: 1.5 MG 1 DOSAGE FORM IN 1 DAY
  23. CARIPRAZINE [Concomitant]
     Active Substance: CARIPRAZINE
     Dosage: 6 MG 1 DOSAGE FORM IN 1 DAY

REACTIONS (3)
  - Suicide attempt [Unknown]
  - Toxicity to various agents [Unknown]
  - Drug ineffective [Unknown]
